FAERS Safety Report 12428435 (Version 1)
Quarter: 2016Q2

REPORT INFORMATION
  Report Type: Spontaneous
  Country: US (occurrence: None)
  Receive Date: 20160601
  Receipt Date: 20160601
  Transmission Date: 20160815
  Serious: No
  Sender: FDA-Public Use
  Company Number: None

PATIENT
  Age: 67 Year
  Sex: Male
  Weight: 89.8 kg

DRUGS (1)
  1. INTRON A [Suspect]
     Active Substance: INTERFERON ALFA-2B
     Dates: end: 20130715

REACTIONS (6)
  - Injection site ulcer [None]
  - Injection site scab [None]
  - Injection site discolouration [None]
  - Injection site induration [None]
  - Injection site erythema [None]
  - Decreased appetite [None]

NARRATIVE: CASE EVENT DATE: 20130807
